FAERS Safety Report 6224207-6 (Version None)
Quarter: 2009Q2

REPORT INFORMATION
  Report Type: 
  Country: None (occurrence: None)
  Receive Date: 20090612
  Receipt Date: 20090311
  Transmission Date: 20091009
  Serious: No
  Sender: FDA-Public Use
  Company Number: US-ABBOTT-09P-163-0561987-00

PATIENT
  Sex: Male

DRUGS (2)
  1. HUMIRA [Suspect]
     Indication: PSORIASIS
     Route: 058
     Dates: start: 20080601
  2. BACLOFEN [Concomitant]
     Indication: MUSCLE SPASMS
     Dosage: UNKNOWN
     Route: 048

REACTIONS (2)
  - ARTHRALGIA [None]
  - PSORIASIS [None]
